FAERS Safety Report 10853270 (Version 1)
Quarter: 2015Q1

REPORT INFORMATION
  Report Type: Report from Study
  Country: US (occurrence: US)
  Receive Date: 20150223
  Receipt Date: 20150223
  Transmission Date: 20150721
  Serious: Yes (Other)
  Sender: FDA-Public Use
  Company Number: US-BIOGENIDEC-2007BI016089

PATIENT
  Sex: Female

DRUGS (2)
  1. AVONEX [Suspect]
     Active Substance: INTERFERON BETA-1A
     Indication: MULTIPLE SCLEROSIS
     Route: 030
     Dates: start: 20000105
  2. AVONEX [Suspect]
     Active Substance: INTERFERON BETA-1A
     Indication: MULTIPLE SCLEROSIS
     Route: 030
     Dates: start: 20011129

REACTIONS (6)
  - Tremor [Not Recovered/Not Resolved]
  - Arthropathy [Unknown]
  - Lung disorder [Recovered/Resolved]
  - Erythema [Unknown]
  - Neoplasm malignant [Recovered/Resolved]
  - Fatigue [Not Recovered/Not Resolved]
